FAERS Safety Report 6202218-4 (Version None)
Quarter: 2009Q2

REPORT INFORMATION
  Report Type: 
  Country: None (occurrence: None)
  Receive Date: 20090518
  Receipt Date: 20090319
  Transmission Date: 20091009
  Serious: No
  Sender: FDA-Public Use
  Company Number: WAES 0903USA03630

PATIENT
  Age: 67 Year
  Sex: Female

DRUGS (3)
  1. JANUVIA [Suspect]
     Indication: TYPE 2 DIABETES MELLITUS
     Dosage: 100 MG/DAILY/PO
     Route: 048
     Dates: start: 20090101, end: 20090319
  2. SYNTHROID [Concomitant]
  3. METFORMIN HCL [Concomitant]

REACTIONS (2)
  - BLOOD GLUCOSE ABNORMAL [None]
  - MYALGIA [None]
